FAERS Safety Report 6070606-5 (Version None)
Quarter: 2009Q1

REPORT INFORMATION
  Report Type: 
  Country: None (occurrence: None)
  Receive Date: 20090209
  Receipt Date: 20090202
  Transmission Date: 20090719
  Serious: Yes (Hospitalization)
  Sender: FDA-Public Use
  Company Number: DE-PFIZER INC-2009164142

PATIENT

DRUGS (2)
  1. SORTIS [Suspect]
     Indication: HYPERCHOLESTEROLAEMIA
     Dosage: 40 MG, UNK
     Route: 048
     Dates: start: 20080701
  2. SORTIS [Suspect]
     Dosage: 20 MG, UNK
     Route: 048
     Dates: start: 20071101, end: 20080701

REACTIONS (1)
  - NEPHROTIC SYNDROME [None]
